FAERS Safety Report 13801874 (Version 2)
Quarter: 2017Q4

REPORT INFORMATION
  Report Type: Spontaneous
  Country: US (occurrence: US)
  Receive Date: 20170727
  Receipt Date: 20171116
  Transmission Date: 20180320
  Serious: Yes (Other)
  Sender: FDA-Public Use
  Company Number: US-BAYER-2017-143529

PATIENT
  Age: 30 Year
  Sex: Female
  Weight: 78.92 kg

DRUGS (1)
  1. MIRENA [Suspect]
     Active Substance: LEVONORGESTREL
     Dosage: 20 MCG/24HR, CONT
     Route: 015
     Dates: start: 20160818, end: 20170721

REACTIONS (6)
  - Device dislocation [None]
  - Menorrhagia [None]
  - Device issue [None]
  - Abdominal pain lower [None]
  - Complication associated with device [None]
  - Genital haemorrhage [None]

NARRATIVE: CASE EVENT DATE: 20170721
